FAERS Safety Report 14475106 (Version 1)
Quarter: 2018Q1

REPORT INFORMATION
  Report Type: Spontaneous
  Country: US (occurrence: US)
  Receive Date: 20180131
  Receipt Date: 20180131
  Transmission Date: 20180509
  Serious: Yes (Other)
  Sender: FDA-Public Use
  Company Number: None

PATIENT
  Sex: Female

DRUGS (1)
  1. MINIVELLE [Suspect]
     Active Substance: ESTRADIOL
     Dosage: OTHER FREQUENCY:CHANGE TWICE WEEK!?
     Route: 062

REACTIONS (2)
  - Product adhesion issue [None]
  - Treatment failure [None]
